FAERS Safety Report 4929901-2 (Version None)
Quarter: 2006Q1

REPORT INFORMATION
  Report Type: 
  Country: None (occurrence: None)
  Receive Date: 20060301
  Receipt Date: 20060221
  Transmission Date: 20060701
  Serious: Yes (Disabling)
  Sender: FDA-Public Use
  Company Number: US-MERCK-0602USA05279

PATIENT
  Age: 39 Year
  Sex: Male
  Weight: 73 kg

DRUGS (3)
  1. VIOXX [Suspect]
     Indication: BACK PAIN
     Route: 048
     Dates: start: 20000101
  2. ASPIRIN [Concomitant]
     Route: 065
  3. TYLENOL (CAPLET) [Concomitant]
     Route: 065

REACTIONS (8)
  - BACK INJURY [None]
  - CARDIAC DISORDER [None]
  - HAEMATEMESIS [None]
  - HEADACHE [None]
  - JOINT INJURY [None]
  - LIVER DISORDER [None]
  - PAIN IN EXTREMITY [None]
  - RENAL DISORDER [None]
